FAERS Safety Report 4423028-4 (Version None)
Quarter: 2004Q3

REPORT INFORMATION
  Report Type: 
  Country: None (occurrence: None)
  Receive Date: 20040811
  Receipt Date: 20040730
  Transmission Date: 20050211
  Serious: Yes (Hospitalization, Other)
  Sender: FDA-Public Use
  Company Number: US-JNJFOC-20040703524

PATIENT
  Age: 74 Year
  Sex: Female

DRUGS (8)
  1. REMINYL [Suspect]
     Route: 049
  2. REMINYL [Suspect]
     Route: 049
  3. AMARYL [Suspect]
     Indication: DRUG USE FOR UNKNOWN INDICATION
  4. NAMENDA [Concomitant]
  5. VERAPAMIL [Concomitant]
     Indication: HYPERTENSION
  6. HYDROCHLOROTHIAZIDE [Concomitant]
     Indication: HYPERTENSION
  7. VIOXX [Concomitant]
  8. ASPIRIN [Concomitant]

REACTIONS (4)
  - BLOOD GLUCOSE DECREASED [None]
  - DEPRESSED LEVEL OF CONSCIOUSNESS [None]
  - LETHARGY [None]
  - MEDICATION ERROR [None]
